FAERS Safety Report 9727055 (Version 1)
Quarter: 2013Q4

REPORT INFORMATION
  Report Type: Spontaneous
  Country: US (occurrence: US)
  Receive Date: 20131203
  Receipt Date: 20131203
  Transmission Date: 20140711
  Serious: No
  Sender: FDA-Public Use
  Company Number: US-ASTRAZENECA-2013SE86419

PATIENT
  Age: 47 Year
  Sex: Female

DRUGS (2)
  1. NEXIUM [Suspect]
     Route: 048
  2. NAPROXEN SODIUM [Concomitant]
     Indication: MIGRAINE

REACTIONS (9)
  - Migraine [Unknown]
  - Condition aggravated [Unknown]
  - Apathy [Unknown]
  - Cough [Unknown]
  - Oesophageal pain [Unknown]
  - Oesophagitis [Unknown]
  - Sleep disorder due to general medical condition, insomnia type [Unknown]
  - Sensation of foreign body [Unknown]
  - Drug dose omission [Unknown]
